FAERS Safety Report 7808325-4 (Version None)
Quarter: 2011Q4

REPORT INFORMATION
  Report Type: 
  Country: None (occurrence: None)
  Receive Date: 20111012
  Receipt Date: 20111006
  Transmission Date: 20120403
  Serious: No
  Sender: FDA-Public Use
  Company Number: US-BIOGENIDEC-2011BI038275

PATIENT
  Age: 32 Year
  Sex: Male

DRUGS (2)
  1. AVONEX [Suspect]
     Indication: MULTIPLE SCLEROSIS
     Route: 030
     Dates: start: 20061201
  2. AVONEX [Suspect]
     Route: 030
     Dates: start: 20060123, end: 20060925

REACTIONS (4)
  - HEADACHE [None]
  - NECK PAIN [None]
  - PAIN IN EXTREMITY [None]
  - BACK PAIN [None]
